FAERS Safety Report 4397633-8 (Version None)
Quarter: 2004Q3

REPORT INFORMATION
  Report Type: 
  Country: None (occurrence: None)
  Receive Date: 20040714
  Receipt Date: 20040706
  Transmission Date: 20050211
  Serious: Yes (Hospitalization)
  Sender: FDA-Public Use
  Company Number: 2004045151

PATIENT
  Sex: Male

DRUGS (1)
  1. UNISOM SLEEPGELS (DIPHENHYDRAMINE) [Suspect]
     Dosage: 40-120 SLEEPGELS ONCE, ORAL
     Route: 048
     Dates: start: 20040706, end: 20040706

REACTIONS (3)
  - FALL [None]
  - HEAD INJURY [None]
  - OVERDOSE [None]
